FAERS Safety Report 16706120 (Version 1)
Quarter: 2019Q3

REPORT INFORMATION
  Report Type: Spontaneous
  Country: FR (occurrence: FR)
  Receive Date: 20190815
  Receipt Date: 20190815
  Transmission Date: 20191004
  Serious: Yes (Hospitalization)
  Sender: FDA-Public Use
  Company Number: FR-MYLANLABS-2019M1075327

PATIENT
  Age: 19 Year
  Sex: Male

DRUGS (4)
  1. KETOPROFEN. [Suspect]
     Active Substance: KETOPROFEN
     Indication: PRODUCT USED FOR UNKNOWN INDICATION
     Dosage: 3000 MILLIGRAM, TOTAL
     Route: 048
     Dates: start: 20190122, end: 20190122
  2. MIOREL                             /00764801/ [Suspect]
     Active Substance: THIOCOLCHICOSIDE
     Indication: PRODUCT USED FOR UNKNOWN INDICATION
     Dosage: 12 DOSAGE FORM, TOTAL
     Route: 048
     Dates: start: 20190122, end: 20190122
  3. DIAZEPAM. [Suspect]
     Active Substance: DIAZEPAM
     Indication: PRODUCT USED FOR UNKNOWN INDICATION
     Dosage: 40 MILLIGRAM, TOTAL
     Route: 048
     Dates: start: 20190122, end: 20190122
  4. PARACETAMOL [Suspect]
     Active Substance: ACETAMINOPHEN
     Indication: PRODUCT USED FOR UNKNOWN INDICATION
     Dosage: 28 GRAM, TOTAL
     Route: 048
     Dates: start: 20190122, end: 20190122

REACTIONS (4)
  - Somnolence [Recovered/Resolved]
  - Hypotension [Recovered/Resolved]
  - Intentional overdose [Unknown]
  - Poisoning deliberate [Recovered/Resolved]

NARRATIVE: CASE EVENT DATE: 20190122
